FAERS Safety Report 6110098-0 (Version None)
Quarter: 2009Q1

REPORT INFORMATION
  Report Type: 
  Country: None (occurrence: None)
  Receive Date: 20090310
  Receipt Date: 20090304
  Transmission Date: 20090719
  Serious: Yes (Other)
  Sender: FDA-Public Use
  Company Number: NO-MERCK-0903NOR00001

PATIENT
  Age: 77 Year
  Sex: Male

DRUGS (8)
  1. FOSAMAX [Suspect]
     Indication: OSTEOPOROSIS
     Route: 048
     Dates: start: 20080401
  2. TIOTROPIUM BROMIDE [Concomitant]
     Indication: ASBESTOSIS
     Dates: start: 20050101
  3. OXYCODONE HYDROCHLORIDE [Concomitant]
     Indication: BACK PAIN
     Route: 048
     Dates: start: 20080101
  4. LEVOTHYROXINE SODIUM [Concomitant]
     Indication: HYPOTHYROIDISM
     Route: 048
     Dates: start: 20040101
  5. FLUTICASONE PROPIONATE AND SALMETEROL XINAFOATE [Concomitant]
     Indication: ASBESTOSIS
     Dates: start: 20050101
  6. ACETAMINOPHEN [Concomitant]
     Route: 048
  7. OXYCODONE HYDROCHLORIDE [Concomitant]
     Route: 048
     Dates: start: 20080101
  8. ESOMEPRAZOLE MAGNESIUM [Concomitant]
     Route: 048

REACTIONS (1)
  - DENTAL CARIES [None]
